FAERS Safety Report 24013129 (Version 1)
Quarter: 2024Q2

REPORT INFORMATION
  Report Type: Spontaneous
  Country: AU (occurrence: AU)
  Receive Date: 20240626
  Receipt Date: 20240626
  Transmission Date: 20240716
  Serious: Yes (Hospitalization)
  Sender: FDA-Public Use
  Company Number: AU-CIPLA LTD.-2024AU06426

PATIENT

DRUGS (41)
  1. LENALIDOMIDE [Suspect]
     Active Substance: LENALIDOMIDE
     Indication: Plasma cell myeloma
     Dosage: 5 MILLIGRAM HARD CAPSULE, UNK
     Route: 048
     Dates: start: 20220203, end: 20230307
  2. RIVAROXABAN [Suspect]
     Active Substance: RIVAROXABAN
     Indication: Atrial fibrillation
     Dosage: 20 MILLIGRAM FILM COATED TABLET
     Route: 048
     Dates: start: 20220707, end: 20240312
  3. RIVAROXABAN [Suspect]
     Active Substance: RIVAROXABAN
     Dosage: 20 MILLIGRAM FILM COATED TABLET
     Route: 048
     Dates: start: 20240315
  4. TECLISTAMAB [Suspect]
     Active Substance: TECLISTAMAB
     Indication: Plasma cell myeloma
     Dosage: 0.49 MILLILITER, UNK
     Route: 058
     Dates: start: 20220114, end: 20230119
  5. BORTEZOMIB [Suspect]
     Active Substance: BORTEZOMIB
     Indication: Plasma cell myeloma
     Dosage: 1.1 MILLILITER, UNK
     Route: 058
     Dates: start: 20220113, end: 20220623
  6. DARATUMUMAB [Suspect]
     Active Substance: DARATUMUMAB
     Indication: Plasma cell myeloma
     Dosage: 15 MILLILITER, UNK
     Route: 058
     Dates: start: 20220113, end: 20230216
  7. AMOXICILLIN\CLAVULANATE POTASSIUM [Concomitant]
     Active Substance: AMOXICILLIN\CLAVULANATE POTASSIUM
     Indication: Urinary tract infection
     Dosage: UNK
     Route: 048
     Dates: start: 20230301, end: 20230301
  8. INTRAGAM P [Concomitant]
     Active Substance: HUMAN IMMUNOGLOBULIN G
     Indication: Hypogammaglobulinaemia
     Dosage: 25 MILLIGRAM AT AN INTERVAL OF 1 MONTH
     Route: 042
     Dates: start: 20220406
  9. PANADOL [Concomitant]
     Active Substance: ACETAMINOPHEN
     Indication: Osteoarthritis
     Dosage: UNK, AT AN INTERVAL OF 1 DAY
     Route: 048
     Dates: start: 20200101
  10. SYMBICORT [Concomitant]
     Active Substance: BUDESONIDE\FORMOTEROL FUMARATE DIHYDRATE
     Indication: Asthma
     Dosage: UNK, AT AN INTERVAL OF 1 DAY
     Dates: start: 20220409
  11. THYROXINE [Concomitant]
     Active Substance: LEVOTHYROXINE
     Indication: Hypothyroidism
     Dosage: 75 MILLIGRAM, UNK
     Route: 048
     Dates: start: 20200101
  12. THYROXINE [Concomitant]
     Active Substance: LEVOTHYROXINE
     Dosage: 100 MILLIGRAM, UNK
     Route: 048
     Dates: start: 20221010, end: 20231101
  13. THYROXINE [Concomitant]
     Active Substance: LEVOTHYROXINE
     Dosage: 150 MILLIGRAM, AT AN INTERVAL OF 1 DAY
     Route: 048
     Dates: start: 20231101, end: 20240312
  14. AMOXICILLIN [Concomitant]
     Active Substance: AMOXICILLIN
     Indication: Lower respiratory tract infection
     Dosage: 500 MILLIGRAM, UNK
     Route: 048
     Dates: start: 20230217, end: 20230301
  15. ATOVAQUONE [Concomitant]
     Active Substance: ATOVAQUONE
     Indication: Antifungal prophylaxis
     Dosage: 750 MILLIGRAM, AT AN INTERVAL OF 1 DAY
     Route: 048
     Dates: start: 20220708
  16. CEPHALEXIN [Concomitant]
     Active Substance: CEPHALEXIN
     Indication: Urinary tract infection
     Dosage: 60000 MILLIGRAM, AT AN INTERVAL OF 1 DAY
     Route: 048
     Dates: start: 20230101
  17. CLOTRIMAZOLE [Concomitant]
     Active Substance: CLOTRIMAZOLE
     Indication: Vulvovaginal candidiasis
     Dosage: UNK
     Route: 062
     Dates: start: 20230301, end: 20230301
  18. CLOTRIMAZOLE [Concomitant]
     Active Substance: CLOTRIMAZOLE
     Dosage: 100 MILLIGRAM, AT AN INTERVAL OF 1 DAY
     Route: 061
     Dates: start: 20231025, end: 20231030
  19. CODEINE [Concomitant]
     Active Substance: CODEINE
     Indication: Cough
     Dosage: 30 MILLIGRAM
     Route: 048
     Dates: start: 20220921
  20. DIGOXIN [Concomitant]
     Active Substance: DIGOXIN
     Indication: Atrial fibrillation
     Dosage: 125 MICROGRAM, AT AN INTERVAL OF 1 DAY
     Route: 048
     Dates: start: 20221001
  21. FENTANYL [Concomitant]
     Active Substance: FENTANYL\FENTANYL CITRATE
     Indication: Biopsy bone marrow
     Dosage: UNK
     Route: 065
  22. FILGRASTIM [Concomitant]
     Active Substance: FILGRASTIM
     Indication: Neutropenia
     Dosage: UNK
     Route: 065
  23. NITROGLYCERIN [Concomitant]
     Active Substance: NITROGLYCERIN
     Indication: Chest pain
     Dosage: 300 MILLIGRAM, UNK
     Route: 048
     Dates: start: 20220811
  24. IBUPROFEN [Concomitant]
     Active Substance: IBUPROFEN
     Indication: Pain in extremity
     Dosage: UNK
     Route: 065
  25. LOPERAMIDE HYDROCHLORIDE [Concomitant]
     Active Substance: LOPERAMIDE HYDROCHLORIDE
     Indication: Diarrhoea
     Dosage: UNK
     Route: 065
  26. MAGNESIUM ASPARTATE [Concomitant]
     Active Substance: MAGNESIUM ASPARTATE
     Indication: Hypomagnesaemia
     Dosage: UNK
     Route: 065
  27. MAGNESIUM [Concomitant]
     Active Substance: MAGNESIUM
     Indication: Muscle spasms
     Dosage: 1000 MILLIGRAM, AT AN INTERVAL OF 1 DAY
     Route: 048
     Dates: start: 20220407
  28. METRONIDAZOLE [Concomitant]
     Active Substance: METRONIDAZOLE
     Indication: Mouth ulceration
     Dosage: UNK
     Route: 065
  29. MIDAZOLAM [Concomitant]
     Active Substance: MIDAZOLAM
     Indication: Biopsy bone marrow
     Dosage: UNK
     Route: 065
  30. ACETAMINOPHEN [Concomitant]
     Active Substance: ACETAMINOPHEN
     Indication: Osteoarthritis
     Dosage: UNK
     Route: 048
     Dates: start: 20200101
  31. ACETAMINOPHEN [Concomitant]
     Active Substance: ACETAMINOPHEN
     Indication: Pain in extremity
     Dosage: UNK
     Route: 065
  32. POTASSIUM CHLORIDE [Concomitant]
     Active Substance: POTASSIUM CHLORIDE
     Indication: Hypokalaemia
     Dosage: UNK
     Route: 065
  33. PREDNISOLONE [Concomitant]
     Active Substance: PREDNISOLONE
     Indication: Acute febrile neutrophilic dermatosis
     Dosage: UNK
     Route: 065
  34. PREGABALIN [Concomitant]
     Active Substance: PREGABALIN
     Indication: Peripheral sensory neuropathy
     Dosage: 150 MILLIGRAM, UNK
     Route: 048
     Dates: start: 20180101
  35. RIVAROXABAN [Concomitant]
     Active Substance: RIVAROXABAN
     Indication: Atrial fibrillation
     Dosage: 20 MILLIGRAM, AT AN INTERVAL OF 1 DAY
     Route: 048
     Dates: start: 20220707, end: 20240312
  36. RIVAROXABAN [Concomitant]
     Active Substance: RIVAROXABAN
     Dosage: 20 MILLIGRAM, AT AN INTERVAL OF 1 DAY
     Route: 048
     Dates: start: 20240315
  37. SPIRONOLACTONE [Concomitant]
     Active Substance: SPIRONOLACTONE
     Indication: Left ventricular failure
     Dosage: 25 MILLIGRAM, AT AN INTERVAL OF 1 DAY
     Route: 048
     Dates: start: 20220722, end: 20230621
  38. SPIRONOLACTONE [Concomitant]
     Active Substance: SPIRONOLACTONE
     Indication: Pneumonia cytomegaloviral
     Dosage: 12.5 MILLIGRAM, AT AN INTERVAL OF 1 DAY
     Route: 048
     Dates: start: 20230121
  39. TIOTROPIUM [Concomitant]
     Active Substance: TIOTROPIUM
     Indication: Asthma
     Dosage: 42 MICROGRAM
     Dates: start: 20221007, end: 20230314
  40. VALGANCICLOVIR [Concomitant]
     Active Substance: VALGANCICLOVIR
     Indication: Antiviral prophylaxis
     Dosage: 450 MILLIGRAM, AT AN INTERVAL OF 1 DAY
     Route: 048
     Dates: start: 20220513, end: 20230901
  41. ZOMETA [Concomitant]
     Active Substance: ZOLEDRONIC ACID
     Indication: Prophylaxis
     Dosage: 4 MILLIGRAM, AT AN INTERVAL OF 1 MONTH
     Route: 042
     Dates: start: 20220428

REACTIONS (2)
  - Abscess limb [Recovering/Resolving]
  - Condition aggravated [Recovering/Resolving]

NARRATIVE: CASE EVENT DATE: 20230307
